FAERS Safety Report 7951902-0 (Version None)
Quarter: 2011Q4

REPORT INFORMATION
  Report Type: 
  Country: None (occurrence: None)
  Receive Date: 20111201
  Receipt Date: 20111201
  Transmission Date: 20120403
  Serious: Yes (Hospitalization)
  Sender: FDA-Public Use
  Company Number: None

PATIENT
  Sex: Female

DRUGS (1)
  1. NALBUPHINE [Suspect]
     Dosage: 5 MG
     Route: 042

REACTIONS (2)
  - MOTOR DYSFUNCTION [None]
  - SOMNOLENCE [None]
